FAERS Safety Report 8215746-7 (Version None)
Quarter: 2012Q1

REPORT INFORMATION
  Report Type: 
  Country: None (occurrence: None)
  Receive Date: 20120316
  Receipt Date: 20120309
  Transmission Date: 20120608
  Serious: Yes (Hospitalization, Other)
  Sender: FDA-Public Use
  Company Number: US-BAYER-2011-029725

PATIENT
  Age: 28 Year
  Sex: Female
  Weight: 90.703 kg

DRUGS (7)
  1. METRONIDAZOLE [Concomitant]
  2. SULFAMETHOXAZOLE AND TRIMETHOPRIM [Concomitant]
  3. ARMODAFINIL [Concomitant]
  4. YASMIN [Suspect]
     Indication: CONTRACEPTION
     Dosage: UNK
     Dates: start: 20031201, end: 20040301
  5. IBUPROFEN [Concomitant]
     Dosage: UNK UNK, PRN
  6. EXCEDRIN [Concomitant]
     Dosage: UNK UNK, PRN
  7. ZITHROMAX [Concomitant]

REACTIONS (10)
  - PULMONARY EMBOLISM [None]
  - PAIN [None]
  - ANXIETY [None]
  - INJURY [None]
  - PALPITATIONS [None]
  - PULMONARY HYPERTENSION [None]
  - CHEST PAIN [None]
  - EMOTIONAL DISTRESS [None]
  - GENERAL PHYSICAL HEALTH DETERIORATION [None]
  - DYSPNOEA [None]
